FAERS Safety Report 10101336 (Version 1)
Quarter: 2014Q2

REPORT INFORMATION
  Report Type: Spontaneous
  Country: US (occurrence: US)
  Receive Date: 20140424
  Receipt Date: 20140424
  Transmission Date: 20141212
  Serious: No
  Sender: FDA-Public Use
  Company Number: US-PFIZER INC-2014113042

PATIENT
  Age: 43 Year
  Sex: Male
  Weight: 86.17 kg

DRUGS (1)
  1. DILANTIN [Suspect]
     Indication: CONVULSION
     Dosage: 400 MG, DAILY
     Route: 048

REACTIONS (2)
  - Hearing impaired [Unknown]
  - Tinnitus [Unknown]
